FAERS Safety Report 10080457 (Version 2)
Quarter: 2014Q2

REPORT INFORMATION
  Report Type: Spontaneous
  Country: FR (occurrence: FR)
  Receive Date: 20140416
  Receipt Date: 20140605
  Transmission Date: 20141212
  Serious: Yes (Other)
  Sender: FDA-Public Use
  Company Number: FR-AMGEN-FRASP2014025573

PATIENT
  Age: 67 Year
  Sex: Female
  Weight: 69 kg

DRUGS (4)
  1. PROLIA [Suspect]
     Indication: OSTEOPOROSIS
     Dosage: UNK
     Route: 065
     Dates: start: 20140214
  2. CRESTOR [Concomitant]
     Dosage: 10 MG, UNK
     Route: 048
  3. CALTRATE                           /00944201/ [Concomitant]
     Route: 048
  4. VITAMIN D                          /00107901/ [Concomitant]
     Route: 048

REACTIONS (7)
  - Bronchial obstruction [Recovered/Resolved]
  - Diarrhoea [Not Recovered/Not Resolved]
  - Pain [Recovered/Resolved]
  - Oropharyngeal pain [Not Recovered/Not Resolved]
  - Pyrexia [Recovered/Resolved]
  - Abdominal distension [Not Recovered/Not Resolved]
  - Burning sensation [Unknown]
